FAERS Safety Report 5031993-X (Version None)
Quarter: 2006Q2

REPORT INFORMATION
  Report Type: 
  Country: None (occurrence: None)
  Receive Date: 20060621
  Receipt Date: 20060510
  Transmission Date: 20061013
  Serious: Yes (Hospitalization)
  Sender: FDA-Public Use
  Company Number: GB-ABBOTT-06P-167-0333113-00

PATIENT
  Sex: Female

DRUGS (4)
  1. HUMIRA [Suspect]
     Indication: RHEUMATOID ARTHRITIS
     Route: 058
     Dates: start: 20040924, end: 20050901
  2. RAMAPRIL [Concomitant]
     Indication: BLOOD PRESSURE INCREASED
     Route: 048
  3. BISOPROLOL [Concomitant]
     Indication: BLOOD PRESSURE INCREASED
     Route: 048
  4. IBUPROFEN [Concomitant]
     Indication: ANALGESIC EFFECT
     Route: 048

REACTIONS (2)
  - MOBILITY DECREASED [None]
  - PNEUMONIA [None]
